FAERS Safety Report 11493930 (Version 3)
Quarter: 2016Q1

REPORT INFORMATION
  Report Type: Spontaneous
  Country: US (occurrence: US)
  Receive Date: 20150911
  Receipt Date: 20160107
  Transmission Date: 20160525
  Serious: Yes (Hospitalization, Other)
  Sender: FDA-Public Use
  Company Number: US-ROCHE-1632767

PATIENT
  Sex: Female
  Weight: 69.92 kg

DRUGS (1)
  1. ESBRIET [Suspect]
     Active Substance: PIRFENIDONE
     Indication: IDIOPATHIC PULMONARY FIBROSIS
     Dosage: 3 CAPSULES TID WITH FOOD
     Route: 048
     Dates: start: 20150618

REACTIONS (4)
  - Herpes zoster [Unknown]
  - Cough [Unknown]
  - Sputum increased [Unknown]
  - Dyspnoea [Unknown]
